FAERS Safety Report 6180851-6 (Version None)
Quarter: 2009Q2

REPORT INFORMATION
  Report Type: 
  Country: None (occurrence: None)
  Receive Date: 20090504
  Receipt Date: 20090504
  Transmission Date: 20091009
  Serious: No
  Sender: FDA-Public Use
  Company Number: None

PATIENT
  Age: 54 Year
  Sex: Female
  Weight: 55.3388 kg

DRUGS (2)
  1. INVEGA [Suspect]
     Indication: MAJOR DEPRESSION
     Dosage: 1 TABLET PER DAY
  2. INVEGA [Suspect]
     Indication: PSYCHOTIC DISORDER
     Dosage: 1 TABLET PER DAY

REACTIONS (1)
  - TARDIVE DYSKINESIA [None]
